FAERS Safety Report 4335009-X (Version None)
Quarter: 2004Q2

REPORT INFORMATION
  Report Type: 
  Country: None (occurrence: None)
  Receive Date: 20040408
  Receipt Date: 20040402
  Transmission Date: 20050107
  Serious: Yes (Life-Threatening)
  Sender: FDA-Public Use
  Company Number: IT-ROCHE-363538

PATIENT
  Age: 16 Year
  Sex: Female

DRUGS (2)
  1. ROCEPHIN [Suspect]
     Indication: BRONCHITIS
     Dosage: DOSING REGIMEN REPORTED AS ONCE. FORMULATION AS VIAL.
     Route: 030
     Dates: start: 20040330, end: 20040330
  2. BENTELAN [Concomitant]
     Dosage: STRENGTH REPORTED AS 1.5 MG/2.
     Route: 042
     Dates: start: 20040330, end: 20040331

REACTIONS (5)
  - CHEST PAIN [None]
  - FACE OEDEMA [None]
  - MALAISE [None]
  - PRURITUS [None]
  - RASH [None]
